FAERS Safety Report 12469265 (Version 1)
Quarter: 2016Q2

REPORT INFORMATION
  Report Type: Spontaneous
  Country: GR (occurrence: GR)
  Receive Date: 20160615
  Receipt Date: 20160615
  Transmission Date: 20160815
  Serious: Yes (Other)
  Sender: FDA-Public Use
  Company Number: GR-BAXALTA-2016BLT004032

PATIENT
  Age: 52 Year
  Sex: Female

DRUGS (1)
  1. HYQVIA [Suspect]
     Active Substance: HUMAN IMMUNOGLOBULIN G\HYALURONIDASE RECOMBINANT HUMAN
     Indication: IMMUNODEFICIENCY COMMON VARIABLE
     Dosage: 30 G, EVERY 3 WK (14TH INFUSION)
     Route: 065
     Dates: start: 20160530

REACTIONS (1)
  - Haemolytic anaemia [Unknown]

NARRATIVE: CASE EVENT DATE: 20160531
